FAERS Safety Report 8065731-3 (Version None)
Quarter: 2012Q1

REPORT INFORMATION
  Report Type: 
  Country: None (occurrence: None)
  Receive Date: 20120124
  Receipt Date: 20120117
  Transmission Date: 20120608
  Serious: Yes (Hospitalization)
  Sender: FDA-Public Use
  Company Number: US-SANOFI-AVENTIS-2012SA000880

PATIENT
  Age: 57 Year
  Sex: Female

DRUGS (6)
  1. CABAZITAXEL [Suspect]
     Route: 042
     Dates: start: 20111103, end: 20111103
  2. DEXAMETHASONE [Concomitant]
  3. ALOXI [Concomitant]
  4. CABAZITAXEL [Suspect]
     Route: 042
     Dates: start: 20111215, end: 20111215
  5. DIPHENHYDRAMINE HCL [Concomitant]
  6. ZANTAC [Concomitant]

REACTIONS (1)
  - BLEEDING VARICOSE VEIN [None]
